FAERS Safety Report 25680523 (Version 1)
Quarter: 2025Q3

REPORT INFORMATION
  Report Type: Spontaneous
  Country: CN (occurrence: CN)
  Receive Date: 20250814
  Receipt Date: 20250814
  Transmission Date: 20251021
  Serious: Yes (Other)
  Sender: PFIZER
  Company Number: CN-PFIZER INC-PV202500097696

PATIENT
  Age: 53 Year
  Sex: Female
  Weight: 62.4 kg

DRUGS (3)
  1. VFEND [Suspect]
     Active Substance: VORICONAZOLE
     Indication: Acute myeloid leukaemia
     Dosage: 0.2 G, 2X/DAY
     Route: 041
     Dates: start: 20250723, end: 20250726
  2. CEFOPERAZONE SODIUM\SULBACTAM SODIUM [Concomitant]
     Active Substance: CEFOPERAZONE SODIUM\SULBACTAM SODIUM
     Indication: Acute myeloid leukaemia
     Dosage: 3 G, 3X/DAY
     Route: 041
     Dates: start: 20250721, end: 20250721
  3. AVIBACTAM SODIUM\CEFTAZIDIME [Concomitant]
     Active Substance: AVIBACTAM SODIUM\CEFTAZIDIME
     Dates: start: 20250724

REACTIONS (2)
  - Delirium [Recovering/Resolving]
  - Depressed level of consciousness [Recovering/Resolving]

NARRATIVE: CASE EVENT DATE: 20250726
